FAERS Safety Report 5934813-1 (Version None)
Quarter: 2008Q4

REPORT INFORMATION
  Report Type: 
  Country: None (occurrence: None)
  Receive Date: 20081027
  Receipt Date: 20081015
  Transmission Date: 20090506
  Serious: Yes (Hospitalization)
  Sender: FDA-Public Use
  Company Number: 2008BI027648

PATIENT
  Age: 60 Year
  Sex: Female

DRUGS (3)
  1. AVONEX [Suspect]
     Indication: MULTIPLE SCLEROSIS
     Dosage: IM;30 UG;QW;IM
     Route: 030
  2. MEDICATIONS [Concomitant]
  3. PREV MEDS [Concomitant]

REACTIONS (2)
  - CHEST PAIN [None]
  - HYPERTENSION [None]
